FAERS Safety Report 18914977 (Version 3)
Quarter: 2021Q2

REPORT INFORMATION
  Report Type: Spontaneous
  Country: TR (occurrence: TR)
  Receive Date: 20210219
  Receipt Date: 20210424
  Transmission Date: 20210717
  Serious: Yes (Other)
  Sender: FDA-Public Use
  Company Number: TR-ABBVIE-21K-161-3779513-00

PATIENT
  Age: 16 Month
  Sex: Male
  Weight: 13 kg

DRUGS (2)
  1. ATROPIN SULFAT [Concomitant]
     Active Substance: ATROPINE SULFATE
     Indication: INDUCTION OF ANAESTHESIA
     Route: 042
     Dates: start: 20210216, end: 20210216
  2. SEVORANE [Suspect]
     Active Substance: SEVOFLURANE
     Indication: ANAESTHESIA PROCEDURE
     Route: 055
     Dates: start: 20210216, end: 20210216

REACTIONS (2)
  - Rash [Recovered/Resolved]
  - Erythema [Recovered/Resolved]

NARRATIVE: CASE EVENT DATE: 20210216
